FAERS Safety Report 6940554-4 (Version None)
Quarter: 2010Q3

REPORT INFORMATION
  Report Type: 
  Country: None (occurrence: None)
  Receive Date: 20100825
  Receipt Date: 20100816
  Transmission Date: 20110219
  Serious: No
  Sender: FDA-Public Use
  Company Number: US-BAYER-201019222BCC

PATIENT
  Age: 89 Year
  Sex: Female
  Weight: 45 kg

DRUGS (12)
  1. ALEVE (CAPLET) [Suspect]
     Indication: BACK PAIN
     Dosage: TOTAL DAILY DOSE: 880 MG  UNIT DOSE: 220 MG
     Route: 048
  2. PHILLIPS COLON HEALTH [Suspect]
     Indication: NAUSEA
     Dosage: TOTAL DAILY DOSE: 1 DF  UNIT DOSE: 1 DF
     Route: 048
     Dates: start: 20100728
  3. DOXYCYCLINE [Concomitant]
     Route: 065
  4. SYNTHROID [Concomitant]
     Route: 065
  5. ATAVAIN [Concomitant]
     Route: 065
  6. MONOPRIL [Concomitant]
     Route: 065
  7. VITAMIN A [Concomitant]
     Route: 065
  8. VITAMIN D [Concomitant]
     Route: 065
  9. VITAMIN E [Concomitant]
     Route: 065
  10. VITAMIN B12 WITH ACID FOLIC [Concomitant]
     Route: 065
  11. VITAMIN B6 [Concomitant]
     Route: 065
  12. ACTONEL [Concomitant]
     Route: 065

REACTIONS (3)
  - BLISTER [None]
  - NAUSEA [None]
  - NERVOUSNESS [None]
